FAERS Safety Report 23522993 (Version 1)
Quarter: 2024Q1

REPORT INFORMATION
  Report Type: Spontaneous
  Country: US (occurrence: None)
  Receive Date: 20240214
  Receipt Date: 20240214
  Transmission Date: 20240409
  Serious: Yes (Other)
  Sender: FDA-Public Use
  Company Number: 2024A031455

PATIENT

DRUGS (1)
  1. FARXIGA [Suspect]
     Active Substance: DAPAGLIFLOZIN PROPANEDIOL
     Route: 048

REACTIONS (9)
  - Oxygen saturation decreased [Unknown]
  - Hallucination [Unknown]
  - Pruritus [Unknown]
  - Fungal infection [Unknown]
  - Memory impairment [Unknown]
  - Blood pressure decreased [Unknown]
  - Feeling abnormal [Unknown]
  - Product dose omission issue [Unknown]
  - Drug ineffective [Unknown]
